FAERS Safety Report 4742637-6 (Version None)
Quarter: 2005Q3

REPORT INFORMATION
  Report Type: 
  Country: None (occurrence: None)
  Receive Date: 20050808
  Receipt Date: 20050725
  Transmission Date: 20060218
  Serious: Yes (Hospitalization, Other)
  Sender: FDA-Public Use
  Company Number: USA0507103672

PATIENT
  Age: 73 Year
  Sex: Female
  Weight: 99 kg

DRUGS (4)
  1. HUMULIN N [Suspect]
     Dosage: 30 U/1 AT BEDTIME
  2. HUMULIN R [Suspect]
     Dosage: 40 U/1 IN THE EVENING
  3. HUMULIN 50/50 [Suspect]
     Dosage: 50 U/1 IN THE MORNING
  4. HUMULIN 70/30 [Suspect]
     Dosage: 40 U/1 AT NOON

REACTIONS (4)
  - LEG AMPUTATION [None]
  - LIVING IN RESIDENTIAL INSTITUTION [None]
  - SKIN ULCER [None]
  - TOE AMPUTATION [None]
